FAERS Safety Report 8390119-5 (Version None)
Quarter: 2012Q2

REPORT INFORMATION
  Report Type: 
  Country: None (occurrence: None)
  Receive Date: 20120529
  Receipt Date: 20120516
  Transmission Date: 20120825
  Serious: Yes (Death, Hospitalization)
  Sender: FDA-Public Use
  Company Number: GB-JNJFOC-20120516530

PATIENT
  Age: 76 Year
  Sex: Female

DRUGS (1)
  1. TRAMADOL HYDROCHLORIDE [Suspect]
     Indication: PRODUCT USED FOR UNKNOWN INDICATION
     Route: 065

REACTIONS (8)
  - SCREAMING [None]
  - SPEECH DISORDER [None]
  - SOMNOLENCE [None]
  - DEPRESSED MOOD [None]
  - MOOD ALTERED [None]
  - DEATH [None]
  - ABNORMAL BEHAVIOUR [None]
  - HALLUCINATION [None]
